FAERS Safety Report 20010922 (Version 1)
Quarter: 2021Q4

REPORT INFORMATION
  Report Type: Spontaneous
  Country: CA (occurrence: CA)
  Receive Date: 20211028
  Receipt Date: 20211028
  Transmission Date: 20220303
  Serious: Yes (Death, Hospitalization, Disabling)
  Sender: FDA-Public Use
  Company Number: CA-TEVA-2021-CA-1969910

PATIENT
  Age: 89 Year
  Sex: Male
  Weight: 64 kg

DRUGS (7)
  1. AMOXICILLIN [Suspect]
     Active Substance: AMOXICILLIN
     Indication: Urinary tract infection
     Dosage: 1000 MILLIGRAM DAILY;
     Route: 048
  2. CIPROFLOXACIN [Suspect]
     Active Substance: CIPROFLOXACIN
     Indication: Urinary tract infection
     Dosage: 1000 MILLIGRAM DAILY;
     Route: 048
  3. CIPROFLOXACIN [Suspect]
     Active Substance: CIPROFLOXACIN
     Indication: Irritable bowel syndrome
  4. BISOPROLOL [Concomitant]
     Active Substance: BISOPROLOL
  5. PERINDOPRIL [Concomitant]
     Active Substance: PERINDOPRIL
  6. SPIRIVA [Concomitant]
     Active Substance: TIOTROPIUM BROMIDE MONOHYDRATE
  7. TAMSULOSIN [Concomitant]
     Active Substance: TAMSULOSIN

REACTIONS (11)
  - Anal incontinence [Fatal]
  - Aspiration [Fatal]
  - Asthenia [Fatal]
  - Diarrhoea haemorrhagic [Fatal]
  - Dyspnoea [Fatal]
  - Loss of personal independence in daily activities [Fatal]
  - Oedema peripheral [Fatal]
  - Oxygen therapy [Fatal]
  - Productive cough [Fatal]
  - Urinary incontinence [Fatal]
  - Mobility decreased [Fatal]
